FAERS Safety Report 12981129 (Version 1)
Quarter: 2016Q4

REPORT INFORMATION
  Report Type: Spontaneous
  Country: US (occurrence: US)
  Receive Date: 20161128
  Receipt Date: 20161128
  Transmission Date: 20170207
  Serious: No
  Sender: FDA-Public Use
  Company Number: US-BIOGEN-2016BI00322402

PATIENT
  Sex: Female

DRUGS (1)
  1. AVONEX [Suspect]
     Active Substance: INTERFERON BETA-1A
     Indication: MULTIPLE SCLEROSIS
     Route: 030
     Dates: start: 20070305

REACTIONS (7)
  - Tremor [Unknown]
  - Chills [Unknown]
  - Fatigue [Unknown]
  - Hyperhidrosis [Unknown]
  - Migraine [Unknown]
  - Pyrexia [Unknown]
  - Influenza like illness [Unknown]
